FAERS Safety Report 7418514-9 (Version None)
Quarter: 2011Q2

REPORT INFORMATION
  Report Type: 
  Country: None (occurrence: None)
  Receive Date: 20110415
  Receipt Date: 20110402
  Transmission Date: 20111010
  Serious: Yes (Death, Other)
  Sender: FDA-Public Use
  Company Number: US-PAR PHARMACEUTICAL, INC-2011SCPR002881

PATIENT

DRUGS (1)
  1. DEXAMETHASONE [Suspect]
     Indication: DEXAMETHASONE SUPPRESSION TEST
     Dosage: 2 MG, QID
     Route: 048

REACTIONS (6)
  - HYPERGLYCAEMIA [None]
  - DEATH [None]
  - METABOLIC ACIDOSIS [None]
  - PHAEOCHROMOCYTOMA CRISIS [None]
  - SHOCK [None]
  - PULMONARY OEDEMA [None]
